FAERS Safety Report 18535751 (Version 1)
Quarter: 2020Q4

REPORT INFORMATION
  Report Type: Spontaneous
  Country: ES (occurrence: ES)
  Receive Date: 20201123
  Receipt Date: 20201123
  Transmission Date: 20210114
  Serious: Yes (Other)
  Sender: FDA-Public Use
  Company Number: ES-PFIZER INC-2020460400

PATIENT
  Age: 58 Year
  Sex: Female

DRUGS (3)
  1. CALCIFEDIOL [Concomitant]
     Active Substance: CALCIFEDIOL
     Indication: VITAMIN D DECREASED
     Dosage: 0.2 MG (FREQ:30 D;)
     Route: 048
     Dates: start: 20201002
  2. PREGABALIN. [Suspect]
     Active Substance: PREGABALIN
     Indication: BACK PAIN
     Dosage: 75 MG, 1X/DAY (FREQ:24 H;)
     Route: 048
     Dates: start: 2011
  3. OMEPRAZOL [Concomitant]
     Active Substance: OMEPRAZOLE
     Indication: DYSPEPSIA
     Dosage: 20 MG (FREQ:7 D)
     Route: 048
     Dates: start: 20201002

REACTIONS (1)
  - Hypertransaminasaemia [Recovering/Resolving]

NARRATIVE: CASE EVENT DATE: 2011
